FAERS Safety Report 11156683 (Version 1)
Quarter: 2015Q2

REPORT INFORMATION
  Report Type: Spontaneous
  Country: IT (occurrence: IT)
  Receive Date: 20150602
  Receipt Date: 20150602
  Transmission Date: 20150821
  Serious: Yes (Hospitalization)
  Sender: FDA-Public Use
  Company Number: IT-GLAXOSMITHKLINE-IT2015GSK072379

PATIENT
  Age: 22 Year
  Sex: Female

DRUGS (3)
  1. DAPAROX [Suspect]
     Active Substance: PAROXETINE HYDROCHLORIDE
     Dosage: 5 ML, SINGLE
     Route: 048
     Dates: start: 20150423, end: 20150423
  2. DAPAROX [Suspect]
     Active Substance: PAROXETINE HYDROCHLORIDE
     Indication: PRODUCT USED FOR UNKNOWN INDICATION
     Dosage: 560 MG, SINGLE
     Route: 048
     Dates: start: 20150423, end: 20150423
  3. LAMICTAL [Suspect]
     Active Substance: LAMOTRIGINE
     Indication: PRODUCT USED FOR UNKNOWN INDICATION
     Dosage: 700 MG, SINGLE
     Route: 048
     Dates: start: 20150423, end: 20150423

REACTIONS (2)
  - Drug abuse [Recovered/Resolved]
  - Somnolence [Recovered/Resolved]

NARRATIVE: CASE EVENT DATE: 20150423
